FAERS Safety Report 13441838 (Version 1)
Quarter: 2017Q2

REPORT INFORMATION
  Report Type: Spontaneous
  Country: FR (occurrence: FR)
  Receive Date: 20170414
  Receipt Date: 20170414
  Transmission Date: 20170830
  Serious: Yes (Death, Other)
  Sender: FDA-Public Use
  Company Number: FR-ADIENNEP-2016AD000313

PATIENT
  Age: 55 Year
  Sex: Female

DRUGS (4)
  1. MELPHALAN. [Suspect]
     Active Substance: MELPHALAN
     Indication: STEM CELL TRANSPLANT
  2. TEPADINA [Suspect]
     Active Substance: THIOTEPA
     Indication: BONE MARROW CONDITIONING REGIMEN
     Dosage: 200 MG/M2
     Dates: start: 20160712, end: 20160715
  3. CYTARABINE. [Suspect]
     Active Substance: CYTARABINE
     Indication: STEM CELL TRANSPLANT
  4. ETOPOSIDE. [Suspect]
     Active Substance: ETOPOSIDE
     Indication: STEM CELL TRANSPLANT

REACTIONS (7)
  - Bone marrow failure [Recovered/Resolved]
  - Septic shock [Fatal]
  - Skin toxicity [Fatal]
  - Mucosal inflammation [Fatal]
  - Pyrexia [Not Recovered/Not Resolved]
  - Dermatitis bullous [Fatal]
  - Toxic skin eruption [Fatal]

NARRATIVE: CASE EVENT DATE: 20160718
